FAERS Safety Report 13339539 (Version 1)
Quarter: 2017Q1

REPORT INFORMATION
  Report Type: Report from Study
  Country: US (occurrence: US)
  Receive Date: 20170315
  Receipt Date: 20170315
  Transmission Date: 20170428
  Serious: Yes (Hospitalization)
  Sender: FDA-Public Use
  Company Number: US-BIOGEN-2017BI00370588

PATIENT
  Sex: Female
  Weight: 104.87 kg

DRUGS (1)
  1. TECFIDERA [Suspect]
     Active Substance: DIMETHYL FUMARATE
     Indication: MULTIPLE SCLEROSIS
     Dosage: MAINTENANCE DOSE
     Route: 048
     Dates: start: 20150915

REACTIONS (3)
  - Procedural headache [Recovered/Resolved]
  - Drug dose omission [Not Recovered/Not Resolved]
  - Thyroid cancer [Recovered/Resolved]
